FAERS Safety Report 16035194 (Version 1)
Quarter: 2019Q1

REPORT INFORMATION
  Report Type: Report from Study
  Country: IT (occurrence: IT)
  Receive Date: 20190305
  Receipt Date: 20190305
  Transmission Date: 20190418
  Serious: Yes (Other)
  Sender: FDA-Public Use
  Company Number: IT-TEVA-2019-IT-1018053

PATIENT
  Age: 82 Year
  Sex: Female

DRUGS (10)
  1. FLURBIPROFEN. [Suspect]
     Active Substance: FLURBIPROFEN
     Dates: start: 20190201, end: 20190201
  2. SOTALOL. [Concomitant]
     Active Substance: SOTALOL
  3. TRIPLIAM 10 MG/2,5 MG/10 MG COMPRESSE RIVESTITE CON FILM [Concomitant]
     Active Substance: AMLODIPINE\INDAPAMIDE\PERINDOPRIL
  4. MIRTAZAPINE. [Concomitant]
     Active Substance: MIRTAZAPINE
  5. DABIGATRAN ETEXILATE MESILATE [Concomitant]
     Active Substance: DABIGATRAN ETEXILATE MESYLATE
  6. OMEPRAZOLE. [Concomitant]
     Active Substance: OMEPRAZOLE
  7. LEVOTHYROXINE SODIUM. [Concomitant]
     Active Substance: LEVOTHYROXINE SODIUM
     Indication: HYPOTHYROIDISM
  8. SALMETEROLO XINAFOATO/FLUTICASONE PROPIONATO [Concomitant]
     Indication: ASTHMA
  9. PLAQUENIL [Concomitant]
     Active Substance: HYDROXYCHLOROQUINE SULFATE
     Indication: RHEUMATOID ARTHRITIS
  10. DELTACORTENE 5 MG COMPRESSE [Concomitant]
     Active Substance: PREDNISONE

REACTIONS (1)
  - Pharyngeal oedema [Recovering/Resolving]

NARRATIVE: CASE EVENT DATE: 20190201
